FAERS Safety Report 9975508 (Version 1)
Quarter: 2014Q1

REPORT INFORMATION
  Report Type: Report from Study
  Country: US (occurrence: US)
  Receive Date: 20140306
  Receipt Date: 20140306
  Transmission Date: 20141002
  Serious: No
  Sender: FDA-Public Use
  Company Number: US-ABBVIE-13P-163-1155766-00

PATIENT
  Sex: Male
  Weight: 60.84 kg

DRUGS (4)
  1. HUMIRA [Suspect]
     Indication: CROHN^S DISEASE
     Dates: start: 2009, end: 2009
  2. HUMIRA [Suspect]
  3. HUMIRA [Suspect]
  4. TWO UNNAMED ANTIBIOTICS [Concomitant]
     Indication: STAPHYLOCOCCAL INFECTION
     Dates: start: 201308

REACTIONS (5)
  - Furuncle [Recovered/Resolved]
  - Injection site pain [Not Recovered/Not Resolved]
  - Staphylococcal infection [Recovered/Resolved]
  - Respiratory tract infection [Recovered/Resolved]
  - Crohn^s disease [Recovered/Resolved]
